FAERS Safety Report 12441578 (Version 1)
Quarter: 2016Q2

REPORT INFORMATION
  Report Type: Spontaneous
  Country: US (occurrence: None)
  Receive Date: 20160606
  Receipt Date: 20160606
  Transmission Date: 20160815
  Serious: No
  Sender: FDA-Public Use
  Company Number: None

PATIENT
  Age: 66 Year
  Sex: Female
  Weight: 100.52 kg

DRUGS (1)
  1. DOCUSATE SODIUM, 100 MG MARLEX PHARMACEUTICALS, INC [Suspect]
     Active Substance: DOCUSATE SODIUM
     Indication: CONSTIPATION
     Route: 048

REACTIONS (1)
  - Product label on wrong product [None]

NARRATIVE: CASE EVENT DATE: 20160526
